FAERS Safety Report 24940806 (Version 1)
Quarter: 2025Q1

REPORT INFORMATION
  Report Type: Spontaneous
  Country: FR (occurrence: FR)
  Receive Date: 20250207
  Receipt Date: 20250207
  Transmission Date: 20250409
  Serious: Yes (Hospitalization)
  Sender: ADVANZ PHARMA
  Company Number: None

PATIENT

DRUGS (2)
  1. ZONISAMIDE [Interacting]
     Active Substance: ZONISAMIDE
     Indication: Epilepsy
     Route: 048
     Dates: start: 201607
  2. VALPROIC ACID [Interacting]
     Active Substance: VALPROIC ACID
     Indication: Epilepsy
     Route: 048
     Dates: start: 2012

REACTIONS (1)
  - Hyperammonaemia [Recovering/Resolving]

NARRATIVE: CASE EVENT DATE: 20241128
